FAERS Safety Report 8558389-8 (Version None)
Quarter: 2012Q3

REPORT INFORMATION
  Report Type: 
  Country: None (occurrence: None)
  Receive Date: 20120801
  Receipt Date: 20120720
  Transmission Date: 20120928
  Serious: No
  Sender: FDA-Public Use
  Company Number: US-ASTRAZENECA-2011SE00535

PATIENT
  Age: 61 Year
  Sex: Female

DRUGS (3)
  1. NEXIUM [Suspect]
     Route: 048
  2. SYMBICORT [Suspect]
     Dosage: 160/4.5 MCG UNKNOWN
     Route: 055
  3. IRON- INTRAVENOUS [Concomitant]
     Route: 042

REACTIONS (4)
  - MALAISE [None]
  - PNEUMONIA [None]
  - FALL [None]
  - LOWER RESPIRATORY TRACT INFECTION [None]
